FAERS Safety Report 5378381-4 (Version None)
Quarter: 2007Q2

REPORT INFORMATION
  Report Type: 
  Country: None (occurrence: None)
  Receive Date: 20070530
  Receipt Date: 20070219
  Transmission Date: 20071010
  Serious: No
  Sender: FDA-Public Use
  Company Number: 2007PV030335

PATIENT
  Age: 69 Year
  Sex: Male
  Weight: 122.4712 kg

DRUGS (3)
  1. BYETTA [Suspect]
     Indication: DIABETES MELLITUS NON-INSULIN-DEPENDENT
     Dosage: 10 MCG;SC ; 5 MCG;SC
     Route: 058
     Dates: start: 20060101, end: 20060101
  2. BYETTA [Suspect]
     Indication: DIABETES MELLITUS NON-INSULIN-DEPENDENT
     Dosage: 10 MCG;SC ; 5 MCG;SC
     Route: 058
     Dates: start: 20060101
  3. LANTUS [Concomitant]

REACTIONS (6)
  - BLOOD GLUCOSE DECREASED [None]
  - FEELING ABNORMAL [None]
  - HEADACHE [None]
  - INFLUENZA [None]
  - NAUSEA [None]
  - WEIGHT DECREASED [None]
